FAERS Safety Report 9700169 (Version 1)
Quarter: 2013Q4

REPORT INFORMATION
  Report Type: Spontaneous
  Country: US (occurrence: None)
  Receive Date: 20131118
  Receipt Date: 20131118
  Transmission Date: 20140711
  Serious: Yes (Hospitalization)
  Sender: FDA-Public Use
  Company Number: 2013P1021054

PATIENT
  Age: 69 Year
  Sex: Female

DRUGS (4)
  1. HYDROXYCHLOROQUINE [Suspect]
     Indication: FELTY^S SYNDROME
  2. PREDNISONE [Suspect]
     Indication: FELTY^S SYNDROME
  3. ENOXAPARIN [Suspect]
     Indication: DEEP VEIN THROMBOSIS
  4. ENOXAPARIN [Suspect]
     Indication: PROPHYLAXIS

REACTIONS (8)
  - Pain in extremity [None]
  - Local swelling [None]
  - Heart rate decreased [None]
  - Haematoma [None]
  - Staphylococcal infection [None]
  - White blood cell count decreased [None]
  - Haemoglobin decreased [None]
  - Walking aid user [None]
